FAERS Safety Report 6748859-7 (Version None)
Quarter: 2010Q2

REPORT INFORMATION
  Report Type: 
  Country: None (occurrence: None)
  Receive Date: 20100601
  Receipt Date: 20100527
  Transmission Date: 20101027
  Serious: Yes (Death, Hospitalization, Other)
  Sender: FDA-Public Use
  Company Number: PHHY2010BR34681

PATIENT
  Sex: Male

DRUGS (2)
  1. FORASEQ [Suspect]
     Indication: CHRONIC OBSTRUCTIVE PULMONARY DISEASE
     Dosage: BID
  2. DRUG THERAPY NOS [Concomitant]

REACTIONS (3)
  - DYSPNOEA [None]
  - LUNG NEOPLASM MALIGNANT [None]
  - RESPIRATORY DISORDER [None]
